FAERS Safety Report 5424446-8 (Version None)
Quarter: 2007Q3

REPORT INFORMATION
  Report Type: 
  Country: None (occurrence: None)
  Receive Date: 20070822
  Receipt Date: 20070807
  Transmission Date: 20080115
  Serious: Yes (Life-Threatening)
  Sender: FDA-Public Use
  Company Number: ENT-2007-0104

PATIENT
  Age: 77 Year
  Sex: Female

DRUGS (5)
  1. COMTAN [Suspect]
     Indication: PARKINSON'S DISEASE
     Dosage: 200 MG
     Route: 048
     Dates: start: 20070614, end: 20070627
  2. MENESIT [Concomitant]
  3. FLUVOXAMINE MALEATE [Concomitant]
  4. CLONAZEPAM [Concomitant]
  5. PERMAX [Concomitant]

REACTIONS (1)
  - INTERSTITIAL LUNG DISEASE [None]
